FAERS Safety Report 23447534 (Version 2)
Quarter: 2024Q1

REPORT INFORMATION
  Report Type: Spontaneous
  Country: US (occurrence: US)
  Receive Date: 20240126
  Receipt Date: 20240207
  Transmission Date: 20240410
  Serious: Yes (Hospitalization)
  Sender: FDA-Public Use
  Company Number: US-AMRYT PHARMACEUTICALS DAC-AEGR006870

PATIENT
  Sex: Female

DRUGS (4)
  1. MYALEPT [Suspect]
     Active Substance: METRELEPTIN
     Indication: Product used for unknown indication
     Dosage: 15 MILLIGRAM
  2. MYALEPT [Suspect]
     Active Substance: METRELEPTIN
     Dosage: 100 MILLIGRAM
  3. MYALEPT [Suspect]
     Active Substance: METRELEPTIN
     Dosage: 150 MILLIGRAM
  4. MYALEPT [Suspect]
     Active Substance: METRELEPTIN
     Dosage: 7.5 MILLIGRAM (1.5ML OR 150 UNITS), QD

REACTIONS (2)
  - Hepatitis [Unknown]
  - Overdose [Unknown]
